FAERS Safety Report 4353658-X (Version None)
Quarter: 2004Q2

REPORT INFORMATION
  Report Type: 
  Country: None (occurrence: None)
  Receive Date: 20040430
  Receipt Date: 20040421
  Transmission Date: 20050107
  Serious: Yes (Life-Threatening)
  Sender: FDA-Public Use
  Company Number: 2004210214JP

PATIENT
  Age: 46 Year
  Sex: Female

DRUGS (2)
  1. AZULFIDINE EN-TABS [Suspect]
     Indication: RHEUMATOID ARTHRITIS
     Dosage: 1 G/DAY , ORAL
     Route: 048
     Dates: start: 20040226, end: 20040408
  2. LOXONIN (LOXOPROFEN SODIUM) [Suspect]
     Dosage: ORAL
     Route: 048
     Dates: start: 20040301

REACTIONS (3)
  - DRUG ERUPTION [None]
  - HEPATIC FUNCTION ABNORMAL [None]
  - HEPATOSPLENOMEGALY [None]
